FAERS Safety Report 4531904-7 (Version None)
Quarter: 2004Q4

REPORT INFORMATION
  Report Type: 
  Country: None (occurrence: None)
  Receive Date: 20041216
  Receipt Date: 20041129
  Transmission Date: 20050328
  Serious: Yes (Hospitalization)
  Sender: FDA-Public Use
  Company Number: USA041184719

PATIENT
  Age: 65 Year
  Sex: Female

DRUGS (2)
  1. ZYPREXA [Suspect]
     Indication: ANXIETY
     Dosage: 10 MG/1 DAY
     Dates: start: 20010201, end: 20040101
  2. TYLENOL (CAPLET) [Concomitant]

REACTIONS (9)
  - ANAEMIA [None]
  - ANXIETY [None]
  - FEAR [None]
  - HALLUCINATION [None]
  - MENTAL DISORDER [None]
  - PANIC DISORDER [None]
  - PNEUMONIA [None]
  - STRESS SYMPTOMS [None]
  - URINARY INCONTINENCE [None]
